FAERS Safety Report 5107254-7 (Version None)
Quarter: 2006Q3

REPORT INFORMATION
  Report Type: 
  Country: None (occurrence: None)
  Receive Date: 20060914
  Receipt Date: 20060908
  Transmission Date: 20061208
  Serious: Yes (Death)
  Sender: FDA-Public Use
  Company Number: 2006SP000483

PATIENT
  Age: 64 Year
  Sex: Male

DRUGS (6)
  1. PEG-INTRON [Suspect]
     Indication: HEPATITIS
     Dosage: 150 MCG/QW/SC
     Route: 058
     Dates: end: 20060401
  2. RIBASPHERE [Suspect]
     Indication: HEPATITIS
     Dosage: 600 MG; BID; PO
     Route: 048
     Dates: end: 20060401
  3. ATENOLOL [Concomitant]
  4. VASOTEC [Concomitant]
  5. PREVACID [Concomitant]
  6. ASPIRIN [Concomitant]

REACTIONS (5)
  - CARDIAC ARREST [None]
  - CONVULSION [None]
  - FATIGUE [None]
  - FOAMING AT MOUTH [None]
  - PAIN [None]
